FAERS Safety Report 17644885 (Version 1)
Quarter: 2020Q2

REPORT INFORMATION
  Report Type: Spontaneous
  Country: HU (occurrence: HU)
  Receive Date: 20200408
  Receipt Date: 20200408
  Transmission Date: 20200713
  Serious: Yes (Hospitalization, Other)
  Sender: FDA-Public Use
  Company Number: NVSC2020HU094594

PATIENT
  Age: 71 Year
  Sex: Female

DRUGS (3)
  1. PAZOPANIB [Suspect]
     Active Substance: PAZOPANIB
     Indication: RENAL CANCER
     Dosage: 400 MG, BID
     Route: 065
     Dates: start: 20161212, end: 20190617
  2. PAZOPANIB [Suspect]
     Active Substance: PAZOPANIB
     Dosage: 400 MG, QD
     Route: 065
  3. NORMODIPINE [Suspect]
     Active Substance: AMLODIPINE BESYLATE
     Indication: HYPERTENSION
     Dosage: 5 MG, QD
     Route: 065

REACTIONS (12)
  - Condition aggravated [Unknown]
  - Asthenia [Unknown]
  - Decreased appetite [Unknown]
  - Nausea [Unknown]
  - Dehydration [Unknown]
  - Renal failure [Unknown]
  - Metastases to the mediastinum [Not Recovered/Not Resolved]
  - Oedema peripheral [Unknown]
  - Dyspnoea [Unknown]
  - Azotaemia [Unknown]
  - Vomiting [Unknown]
  - Laboratory test abnormal [Unknown]

NARRATIVE: CASE EVENT DATE: 2019
